FAERS Safety Report 9733418 (Version 2)
Quarter: 2014Q1

REPORT INFORMATION
  Report Type: Spontaneous
  Country: ES (occurrence: ES)
  Receive Date: 20131205
  Receipt Date: 20140214
  Transmission Date: 20141002
  Serious: Yes (Death, Life-Threatening, Hospitalization)
  Sender: FDA-Public Use
  Company Number: ES-PFIZER INC-2013346342

PATIENT
  Age: 74 Year
  Sex: Male

DRUGS (14)
  1. CISPLATIN [Suspect]
     Indication: PLASMA CELL MYELOMA
     Dosage: UNK, REGIMEN #1, (FIFTH LINE TREATMENT, CYCLE 1)
     Dates: start: 20130313, end: 20130412
  2. CISPLATIN [Suspect]
     Dosage: UNK, REGIMEN #2, (FIFTH LINE TREATMENT, CYCLE 2)
     Dates: start: 20130416, end: 20130426
  3. ADRIAMYCIN [Suspect]
     Indication: PLASMA CELL MYELOMA
     Dosage: UNK, REGIMEN #1, (FIFTH LINE TREATMENT, CYCLE 1)
     Dates: start: 20130313, end: 20130412
  4. ADRIAMYCIN [Suspect]
     Dosage: UNK, REGIMEN #2, (FIFTH LINE TREATMENT, CYCLE 2)
     Dates: start: 20130416, end: 20130426
  5. BENDAMUSTINE [Suspect]
     Indication: PLASMA CELL MYELOMA
     Dosage: UNK, (1 IN 1 D), (FOURTH LINE TREATMENT, CYCLE 1)
     Route: 042
     Dates: start: 20130221, end: 20130222
  6. VELCADE [Suspect]
     Indication: PLASMA CELL MYELOMA
     Dosage: UNK, REGIMEN #2, (FIFTH LINE TREATMENT, CYCLE 1)
     Dates: start: 20130313, end: 20130412
  7. VELCADE [Suspect]
     Dosage: UNK, REGIMEN #3, (FIFTH LINE TREATMENT, CYCLE 2)
     Dates: start: 20130416, end: 20130426
  8. LENALIDOMIDE [Suspect]
     Indication: PLASMA CELL MYELOMA
     Dosage: UNK, REGIMEN #6, (FIFTH LINE TREATMENT, CYCLE 1)
     Dates: start: 20130313, end: 20130412
  9. LENALIDOMIDE [Suspect]
     Dosage: UNK, REGIMEN #7, (FIFTH LINE TREATMENT, CYCLE 2)
     Dates: start: 20130416, end: 20130426
  10. APO-PREDNISONE [Suspect]
     Indication: PLASMA CELL MYELOMA
     Dosage: UNK, REGIMEN #3, (FOURTH LINE TREATMENT, CYCLE 1)
     Dates: start: 20130221, end: 20130222
  11. ACYCLOVIR [Concomitant]
     Dosage: UNK
     Dates: start: 20120715
  12. BACTRIM [Concomitant]
     Dosage: UNK
     Dates: start: 20110906
  13. LEVOFLOXACIN [Concomitant]
     Dosage: UNK
     Dates: start: 20130209
  14. EPOETIN BETA [Suspect]
     Dosage: UNK
     Dates: start: 20121114

REACTIONS (4)
  - Encephalopathy [Fatal]
  - Aplasia [Recovered/Resolved]
  - Toxicity to various agents [Recovered/Resolved]
  - Fatigue [Recovered/Resolved]
